FAERS Safety Report 13581519 (Version 7)
Quarter: 2017Q4

REPORT INFORMATION
  Report Type: Report from Study
  Country: BR (occurrence: BR)
  Receive Date: 20170525
  Receipt Date: 20171108
  Transmission Date: 20180320
  Serious: Yes (Other)
  Sender: FDA-Public Use
  Company Number: BR-GLAXOSMITHKLINE-BR2016GSK008619

PATIENT
  Sex: Female
  Weight: 88 kg

DRUGS (6)
  1. BELIMUMAB [Suspect]
     Active Substance: BELIMUMAB
     Dosage: 800 MG, UNK
     Route: 042
     Dates: start: 20170905
  2. HYDROXYCHLOROQUINE SULFATE. [Concomitant]
     Active Substance: HYDROXYCHLOROQUINE SULFATE
     Indication: PRODUCT USED FOR UNKNOWN INDICATION
     Dosage: UNK
  3. BELIMUMAB [Suspect]
     Active Substance: BELIMUMAB
     Dosage: UNK
     Route: 042
     Dates: start: 20170424
  4. BELIMUMAB [Suspect]
     Active Substance: BELIMUMAB
     Indication: SYSTEMIC LUPUS ERYTHEMATOSUS
     Dosage: UNK , CYC
     Route: 042
     Dates: start: 20150723
  5. BELIMUMAB [Suspect]
     Active Substance: BELIMUMAB
     Dosage: UNK
     Route: 042
     Dates: start: 20170524
  6. PREDNISONE. [Concomitant]
     Active Substance: PREDNISONE
     Indication: PRODUCT USED FOR UNKNOWN INDICATION
     Dosage: UNK

REACTIONS (15)
  - Hypotension [Unknown]
  - Inappropriate schedule of drug administration [Recovered/Resolved]
  - Pneumonia [Unknown]
  - Systemic lupus erythematosus [Unknown]
  - Alopecia [Unknown]
  - Dizziness [Unknown]
  - Influenza [Recovered/Resolved]
  - Blood test abnormal [Unknown]
  - Drug dose omission [Recovered/Resolved]
  - Circumstance or information capable of leading to medication error [Unknown]
  - Intestinal resection [Unknown]
  - Malaise [Unknown]
  - Oophorectomy [Unknown]
  - Bacterial infection [Unknown]
  - Underdose [Not Recovered/Not Resolved]
